FAERS Safety Report 24525359 (Version 2)
Quarter: 2024Q4

REPORT INFORMATION
  Report Type: Spontaneous
  Country: US (occurrence: US)
  Receive Date: 20241019
  Receipt Date: 20241112
  Transmission Date: 20250115
  Serious: No
  Sender: ALEXION PHARMACEUTICALS
  Company Number: US-AstraZeneca-CH-00729179A

PATIENT

DRUGS (4)
  1. FASENRA [Suspect]
     Active Substance: BENRALIZUMAB
     Dosage: UNK UNK, Q8W
  2. FASENRA [Suspect]
     Active Substance: BENRALIZUMAB
     Dosage: UNK UNK, Q8W
  3. FASENRA [Suspect]
     Active Substance: BENRALIZUMAB
     Dosage: UNK UNK, Q8W
  4. FASENRA [Suspect]
     Active Substance: BENRALIZUMAB
     Dosage: UNK UNK, Q8W

REACTIONS (3)
  - Asthma [Unknown]
  - Oxygen consumption [Unknown]
  - Insurance issue [Unknown]
